FAERS Safety Report 6211847-3 (Version None)
Quarter: 2009Q2

REPORT INFORMATION
  Report Type: 
  Country: None (occurrence: None)
  Receive Date: 20090602
  Receipt Date: 20090522
  Transmission Date: 20091009
  Serious: Yes (Death)
  Sender: FDA-Public Use
  Company Number: KR-PFIZER INC-2009218406

PATIENT
  Age: 62 Year

DRUGS (3)
  1. CAMPTOSAR [Suspect]
     Indication: GASTRIC CANCER
     Dosage: 180 MG/2 WEEKS
     Route: 042
     Dates: start: 20090414, end: 20090429
  2. FLUOROURACIL [Suspect]
     Indication: GASTRIC CANCER
     Dosage: 1000 MG,/2 WEEKS
     Route: 042
     Dates: start: 20090414, end: 20090429
  3. CALCIUM LEVOFOLINATE [Suspect]
     Indication: GASTRIC CANCER
     Dosage: 200 MG/2 WEEKS
     Route: 042
     Dates: start: 20090414, end: 20090429

REACTIONS (1)
  - HYPOVOLAEMIC SHOCK [None]
